FAERS Safety Report 7016392-3 (Version None)
Quarter: 2010Q3

REPORT INFORMATION
  Report Type: 
  Country: None (occurrence: None)
  Receive Date: 20100923
  Receipt Date: 20100908
  Transmission Date: 20110219
  Serious: Yes (Death)
  Sender: FDA-Public Use
  Company Number: AUR-APL-2010-02266

PATIENT
  Age: 29 Year
  Weight: 81 kg

DRUGS (5)
  1. CITALOPRAM HYDROBROMIDE [Suspect]
  2. CLOZAPINE [Suspect]
  3. MORPHINE [Suspect]
  4. DULOXETINE [Concomitant]
  5. NALTREXONE HYDROCHLORIDE [Concomitant]

REACTIONS (8)
  - CARDIAC ARREST [None]
  - CARDIOMEGALY [None]
  - DRUG TOXICITY [None]
  - DUODENITIS [None]
  - GASTRITIS EROSIVE [None]
  - INCORRECT ROUTE OF DRUG ADMINISTRATION [None]
  - PULMONARY CONGESTION [None]
  - PULMONARY OEDEMA [None]
